FAERS Safety Report 12566350 (Version 1)
Quarter: 2016Q3

REPORT INFORMATION
  Report Type: Spontaneous
  Country: US (occurrence: US)
  Receive Date: 20160718
  Receipt Date: 20160718
  Transmission Date: 20161109
  Serious: Yes (Other)
  Sender: FDA-Public Use
  Company Number: US-JNJFOC-20160711029

PATIENT
  Age: 60 Year
  Sex: Female
  Weight: 96.6 kg

DRUGS (7)
  1. XARELTO [Suspect]
     Active Substance: RIVAROXABAN
     Indication: PRODUCT USED FOR UNKNOWN INDICATION
     Route: 048
  2. ADEMPAS [Suspect]
     Active Substance: RIOCIGUAT
     Indication: PULMONARY ARTERIAL HYPERTENSION
     Route: 048
  3. ADEMPAS [Suspect]
     Active Substance: RIOCIGUAT
     Indication: PULMONARY ARTERIAL HYPERTENSION
     Route: 048
     Dates: start: 20150408
  4. OPSUMIT [Concomitant]
     Active Substance: MACITENTAN
     Route: 065
  5. ADEMPAS [Suspect]
     Active Substance: RIOCIGUAT
     Indication: PULMONARY ARTERIAL HYPERTENSION
     Route: 048
  6. ADEMPAS [Suspect]
     Active Substance: RIOCIGUAT
     Indication: PULMONARY ARTERIAL HYPERTENSION
     Route: 048
  7. COUMADIN [Concomitant]
     Active Substance: WARFARIN SODIUM
     Route: 065

REACTIONS (15)
  - Lung disorder [Unknown]
  - Muscle spasms [Unknown]
  - Migraine [Unknown]
  - Malaise [Unknown]
  - Nasopharyngitis [Unknown]
  - Dizziness [Unknown]
  - Cough [Unknown]
  - Lung disorder [Not Recovered/Not Resolved]
  - Feeling hot [Unknown]
  - Fatigue [Unknown]
  - Chills [Unknown]
  - Abdominal discomfort [Unknown]
  - Deafness [Unknown]
  - Epistaxis [Unknown]
  - Flatulence [Unknown]

NARRATIVE: CASE EVENT DATE: 201509
